FAERS Safety Report 7017877-6 (Version None)
Quarter: 2010Q3

REPORT INFORMATION
  Report Type: 
  Country: None (occurrence: None)
  Receive Date: 20100927
  Receipt Date: 20100927
  Transmission Date: 20110219
  Serious: Yes (Hospitalization)
  Sender: FDA-Public Use
  Company Number: None

PATIENT
  Age: 27 Year
  Sex: Male

DRUGS (1)
  1. METHOCARBAMOL [Suspect]
     Indication: PAIN
     Dosage: 750 MG PRN PO
     Route: 048
     Dates: start: 20100818, end: 20100921

REACTIONS (7)
  - FLUSHING [None]
  - HYPOTENSION [None]
  - PRURITUS [None]
  - RASH [None]
  - SENSATION OF FOREIGN BODY [None]
  - TACHYCARDIA [None]
  - URTICARIA [None]
